FAERS Safety Report 6337470-8 (Version None)
Quarter: 2009Q3

REPORT INFORMATION
  Report Type: 
  Country: None (occurrence: None)
  Receive Date: 20090901
  Receipt Date: 20090901
  Transmission Date: 20100115
  Serious: Yes (Hospitalization)
  Sender: FDA-Public Use
  Company Number: None

PATIENT
  Age: 71 Year
  Sex: Male

DRUGS (2)
  1. PACLITAXEL [Suspect]
     Indication: NON-SMALL CELL LUNG CANCER
     Dosage: 2 CYCLES
  2. IMATINIB MESYLATE [Suspect]
     Indication: NON-SMALL CELL LUNG CANCER
     Dosage: 100 MG  (2 CYCLES)

REACTIONS (2)
  - ALVEOLITIS [None]
  - PULMONARY ALVEOLAR HAEMORRHAGE [None]
